FAERS Safety Report 25300621 (Version 1)
Quarter: 2025Q2

REPORT INFORMATION
  Report Type: Spontaneous
  Country: CA (occurrence: CA)
  Receive Date: 20250512
  Receipt Date: 20250512
  Transmission Date: 20250717
  Serious: Yes (Hospitalization, Other)
  Sender: PFIZER
  Company Number: CA-PFIZER INC-202500077128

PATIENT
  Age: 62 Year
  Sex: Female

DRUGS (3)
  1. RUXIENCE [Suspect]
     Active Substance: RITUXIMAB-PVVR
     Indication: Scleritis
     Route: 042
     Dates: start: 20241023
  2. RUXIENCE [Suspect]
     Active Substance: RITUXIMAB-PVVR
     Route: 042
     Dates: start: 20241106
  3. CORTISONE [Concomitant]
     Active Substance: CORTISONE

REACTIONS (2)
  - Nephropathy [Unknown]
  - Metastatic neoplasm [Unknown]
